FAERS Safety Report 19849393 (Version 2)
Quarter: 2023Q4

REPORT INFORMATION
  Report Type: Spontaneous
  Country: RU (occurrence: None)
  Receive Date: 20210917
  Receipt Date: 20231127
  Transmission Date: 20240110
  Serious: Yes (Other)
  Sender: FDA-Public Use
  Company Number: RU-ROCHE-2909935

PATIENT
  Age: 34 Year

DRUGS (2)
  1. RITUXIMAB [Suspect]
     Active Substance: RITUXIMAB
     Indication: Neuromyelitis optica spectrum disorder
     Dosage: ON /SEP/2019, SECOND COURSE OF RITUXIMAB 2000 MG
     Route: 041
     Dates: start: 201803
  2. RITUXIMAB [Suspect]
     Active Substance: RITUXIMAB
     Dosage: ON /SEP/2020, 4TH COURSE OF RITUXIMAB.
     Route: 041
     Dates: start: 202002

REACTIONS (6)
  - Myelopathy [Unknown]
  - Muscular weakness [Unknown]
  - Hypoaesthesia [Unknown]
  - Burning sensation [Unknown]
  - Maternal exposure before pregnancy [Unknown]
  - Off label use [Unknown]

NARRATIVE: CASE EVENT DATE: 20190601
